FAERS Safety Report 4593567-4 (Version None)
Quarter: 2005Q1

REPORT INFORMATION
  Report Type: 
  Country: None (occurrence: None)
  Receive Date: 20050224
  Receipt Date: 20040908
  Transmission Date: 20050727
  Serious: No
  Sender: FDA-Public Use
  Company Number: US-BRISTOL-MYERS SQUIBB COMPANY-12697835

PATIENT
  Age: 42 Year
  Sex: Female
  Weight: 66 kg

DRUGS (1)
  1. EXCEDRIN (MIGRAINE) [Suspect]
     Indication: TOOTHACHE
     Route: 048
     Dates: start: 20040831, end: 20040831

REACTIONS (4)
  - FEELING JITTERY [None]
  - HALLUCINATION [None]
  - INCOHERENT [None]
  - INSOMNIA [None]
